FAERS Safety Report 18456171 (Version 2)
Quarter: 2020Q4

REPORT INFORMATION
  Report Type: Spontaneous
  Country: DK (occurrence: DK)
  Receive Date: 20201103
  Receipt Date: 20201120
  Transmission Date: 20210114
  Serious: Yes (Hospitalization, Other)
  Sender: FDA-Public Use
  Company Number: DK-PFIZER INC-2020425794

PATIENT
  Age: 64 Year
  Sex: Female

DRUGS (4)
  1. MEKTOVI [Suspect]
     Active Substance: BINIMETINIB
     Indication: METASTATIC MALIGNANT MELANOMA
     Dosage: 45 MG, BID (2/DAY)
     Route: 065
     Dates: start: 201905
  2. HYDROCORTISONE. [Concomitant]
     Active Substance: HYDROCORTISONE
     Dosage: UNK
     Route: 065
  3. BRAFTOVI [Suspect]
     Active Substance: ENCORAFENIB
     Indication: METASTATIC MALIGNANT MELANOMA
     Dosage: 450 MG, UNK
     Route: 065
     Dates: start: 201905, end: 20200923
  4. BRAFTOVI [Suspect]
     Active Substance: ENCORAFENIB
     Dosage: 300 MG, UNK
     Route: 048
     Dates: start: 20200928

REACTIONS (6)
  - Paralysis [Recovering/Resolving]
  - Off label use [Unknown]
  - Cerebral haemorrhage [Unknown]
  - Product use in unapproved indication [Unknown]
  - Cerebrovascular accident [Recovering/Resolving]
  - Intracranial tumour haemorrhage [Unknown]

NARRATIVE: CASE EVENT DATE: 20200925
